FAERS Safety Report 25279352 (Version 1)
Quarter: 2025Q2

REPORT INFORMATION
  Report Type: Spontaneous
  Country: US (occurrence: US)
  Receive Date: 20250507
  Receipt Date: 20250507
  Transmission Date: 20250717
  Serious: Yes (Hospitalization)
  Sender: SANOFI AVENTIS
  Company Number: US-SANOFI-02508160

PATIENT
  Age: 60 Year
  Sex: Female

DRUGS (3)
  1. DUPIXENT [Suspect]
     Active Substance: DUPILUMAB
     Indication: Nasal polyps
     Dates: start: 20250317, end: 20250317
  2. DUPIXENT [Suspect]
     Active Substance: DUPILUMAB
     Dates: start: 2025
  3. ATORVASTATIN [Concomitant]
     Active Substance: ATORVASTATIN
     Indication: Blood cholesterol
     Route: 065

REACTIONS (2)
  - Hepatic enzyme increased [Unknown]
  - Hepatic function abnormal [Unknown]
